FAERS Safety Report 9725176 (Version 3)
Quarter: 2014Q1

REPORT INFORMATION
  Report Type: Report from Study
  Country: DE (occurrence: DE)
  Receive Date: 20131203
  Receipt Date: 20140310
  Transmission Date: 20141002
  Serious: Yes (Hospitalization, Other)
  Sender: FDA-Public Use
  Company Number: DE-BEH-2013036110

PATIENT
  Age: 71 Year
  Sex: Male
  Weight: 86 kg

DRUGS (38)
  1. PRIVIGEN [Suspect]
     Dosage: INFUSION RATE: 0.4-2.5 ML/MIN
     Route: 042
     Dates: start: 20130312, end: 20130312
  2. PRIVIGEN [Suspect]
     Dates: start: 20130312, end: 20130312
  3. PRIVIGEN [Suspect]
     Dates: start: 20130312, end: 20130312
  4. PRIVIGEN [Suspect]
     Indication: LUNG INFECTION
     Dosage: INFUSION RATE: 0.4-5.0 ML/MIN
     Route: 042
     Dates: start: 20130409, end: 20130409
  5. PRIVIGEN [Suspect]
     Dates: start: 20130409, end: 20130409
  6. PRIVIGEN [Suspect]
     Dates: start: 20130409, end: 20130409
  7. PRIVIGEN [Suspect]
     Dosage: INFUSION RATE: 0.8-6 ML/MIN
     Route: 042
     Dates: start: 20130507, end: 20130507
  8. PRIVIGEN [Suspect]
     Dates: start: 20130507, end: 20130507
  9. PRIVIGEN [Suspect]
     Dates: start: 20130507, end: 20130507
  10. PRIVIGEN [Suspect]
     Dosage: INFUSION RATE: 1.25-9 ML/MIN
     Route: 042
     Dates: start: 20130604, end: 20130604
  11. PRIVIGEN [Suspect]
     Indication: MONOCLONAL GAMMOPATHY
     Dates: start: 20130604, end: 20130604
  12. PRIVIGEN [Suspect]
     Indication: SECONDARY IMMUNODEFICIENCY
     Dates: start: 20130604, end: 20130604
  13. PRIVIGEN [Suspect]
     Dosage: INFUSION RATE: 1.25-9 ML/MIN
     Route: 042
     Dates: start: 20130702, end: 20130702
  14. PRIVIGEN [Suspect]
     Dates: start: 20130702, end: 20130702
  15. PRIVIGEN [Suspect]
     Dates: start: 20130702, end: 20130702
  16. PRIVIGEN [Suspect]
     Dosage: INFUSION RATE: 1.25-9 ML/MIN
     Route: 042
     Dates: start: 20130731, end: 20130731
  17. PRIVIGEN [Suspect]
     Dates: start: 20130731, end: 20130731
  18. PRIVIGEN [Suspect]
     Dates: start: 20130731, end: 20130731
  19. PRIVIGEN [Suspect]
     Dosage: INFUSION RATE: 1.25-9 ML/MIN
     Route: 042
     Dates: start: 20130829, end: 20130829
  20. PRIVIGEN [Suspect]
     Dates: start: 20130829, end: 20130829
  21. PRIVIGEN [Suspect]
     Dates: start: 20130829, end: 20130829
  22. PRIVIGEN [Suspect]
     Dosage: INFUSION RATE: 1.25-9 ML/MIN
     Route: 042
     Dates: start: 20130926, end: 20130926
  23. PRIVIGEN [Suspect]
     Dates: start: 20130926, end: 20130926
  24. PRIVIGEN [Suspect]
     Dates: start: 20130926, end: 20130926
  25. PRIVIGEN [Suspect]
     Dosage: INFUSION RATE: 1.25-9 ML/MIN
     Route: 042
     Dates: start: 20131024, end: 20131024
  26. PRIVIGEN [Suspect]
     Dates: start: 20131024, end: 20131024
  27. PRIVIGEN [Suspect]
     Dates: start: 20131024, end: 20131024
  28. MTX [Concomitant]
     Dates: end: 20130419
  29. FOLSAN [Concomitant]
     Indication: MYALGIA
  30. RAMIPRIL [Concomitant]
     Indication: HYPERTENSION
     Dosage: DAILY
  31. ASS [Concomitant]
  32. METFORMIN [Concomitant]
  33. OMEPRAZOL [Concomitant]
  34. VITAMIN D3 [Concomitant]
  35. SPIRIVA [Concomitant]
  36. SYMBICORT [Concomitant]
  37. EMSELEX [Concomitant]
  38. AMLODIPINE [Concomitant]

REACTIONS (4)
  - Chronic obstructive pulmonary disease [Recovered/Resolved]
  - Moraxella infection [Recovered/Resolved]
  - Pyrexia [Recovered/Resolved]
  - Lung infection [Recovered/Resolved]
